FAERS Safety Report 8063200-8 (Version None)
Quarter: 2012Q1

REPORT INFORMATION
  Report Type: 
  Country: None (occurrence: None)
  Receive Date: 20120123
  Receipt Date: 20120118
  Transmission Date: 20120608
  Serious: Yes (Hospitalization)
  Sender: FDA-Public Use
  Company Number: FR-PFIZER INC-K201100706

PATIENT
  Age: 69 Year
  Sex: Male

DRUGS (19)
  1. SIMVASTATIN [Suspect]
     Dosage: 20 MG, 1X/DAY
     Route: 048
     Dates: start: 20110416, end: 20110506
  2. ARIXTRA [Suspect]
     Indication: ACUTE CORONARY SYNDROME
     Dosage: 2.5 ML, 1X/DAY
     Route: 058
     Dates: start: 20110415, end: 20110416
  3. PREDNISOLONE [Concomitant]
     Dosage: UNK
     Dates: start: 20110408, end: 20110412
  4. CLARITHROMYCIN [Concomitant]
     Dosage: UNK
     Dates: start: 20110408
  5. AVODART [Concomitant]
  6. BECLOMETHASONE DIPROPIONATE [Concomitant]
  7. EZETIMIBE [Concomitant]
     Dosage: UNK
     Dates: start: 20110401
  8. PLAVIX [Suspect]
     Indication: ACUTE CORONARY SYNDROME
     Dosage: 75 MG, 1X/DAY
     Route: 048
     Dates: start: 20110415, end: 20110416
  9. VASTAREL [Concomitant]
  10. BISOPROLOL FUMARATE [Concomitant]
     Dosage: UNK
     Dates: start: 20110401
  11. PERMIXON [Concomitant]
  12. SULFARLEM [Concomitant]
  13. AUGMENTIN '125' [Suspect]
     Indication: BRONCHITIS
     Dosage: UNK
     Route: 048
     Dates: start: 20110331, end: 20110408
  14. VENTOLIN [Concomitant]
  15. ACETAMINOPHEN [Concomitant]
  16. RAMIPRIL [Suspect]
     Dosage: 1.25 MG, 1X/DAY
     Route: 048
     Dates: start: 20110415, end: 20110507
  17. REPAGLINIDE [Concomitant]
  18. LEXOMIL [Concomitant]
  19. ASPIRIN [Concomitant]
     Dosage: UNK
     Dates: start: 20110401

REACTIONS (8)
  - DRUG RASH WITH EOSINOPHILIA AND SYSTEMIC SYMPTOMS [None]
  - RASH [None]
  - EOSINOPHILIA [None]
  - ASTHENIA [None]
  - MYOPERICARDITIS [None]
  - PYREXIA [None]
  - PRURITUS [None]
  - PRURIGO [None]
